FAERS Safety Report 4295026-5 (Version None)
Quarter: 2004Q1

REPORT INFORMATION
  Report Type: 
  Country: None (occurrence: None)
  Receive Date: 20040211
  Receipt Date: 20040128
  Transmission Date: 20041129
  Serious: Yes (Death)
  Sender: FDA-Public Use
  Company Number: 2004AP00433

PATIENT
  Age: 74 Year
  Sex: Male

DRUGS (9)
  1. IRESSA [Suspect]
     Indication: ADENOCARCINOMA
     Dosage: 250 MG DAILY PO
     Route: 048
     Dates: start: 20031018
  2. IRESSA [Suspect]
     Indication: NON-SMALL CELL LUNG CANCER
     Dosage: 250 MG DAILY PO
     Route: 048
     Dates: start: 20031018
  3. HALFDIGOXIN [Concomitant]
  4. SELBEX [Concomitant]
  5. GASTER OD [Concomitant]
  6. CISPLATIN [Concomitant]
  7. HYDANTOL [Concomitant]
  8. TAXOL [Concomitant]
  9. RADIATION THERAPY [Concomitant]

REACTIONS (5)
  - ALANINE AMINOTRANSFERASE INCREASED [None]
  - ASPARTATE AMINOTRANSFERASE INCREASED [None]
  - CONDITION AGGRAVATED [None]
  - GAMMA-GLUTAMYLTRANSFERASE INCREASED [None]
  - PNEUMONIA ASPIRATION [None]
